FAERS Safety Report 6470850-9 (Version None)
Quarter: 2009Q4

REPORT INFORMATION
  Report Type: 
  Country: None (occurrence: None)
  Receive Date: 20091203
  Receipt Date: 20080716
  Transmission Date: 20100525
  Serious: Yes (Hospitalization)
  Sender: FDA-Public Use
  Company Number: US-ELI_LILLY_AND_COMPANY-US200801004362

PATIENT
  Sex: Female
  Weight: 85.714 kg

DRUGS (7)
  1. ZYPREXA [Suspect]
     Dosage: 5 MG, UNK
     Dates: start: 20001128, end: 20060101
  2. ZYPREXA [Suspect]
     Dosage: 10 MG, UNK
  3. ABILIFY [Concomitant]
     Dates: start: 20060801
  4. RISPERDAL [Concomitant]
     Dates: start: 20000101
  5. GEODON [Concomitant]
     Dates: start: 20060101
  6. BREVICON 21 [Concomitant]
     Dates: start: 19880101, end: 20050101
  7. LASIX [Concomitant]
     Dates: start: 20060101

REACTIONS (5)
  - DEPRESSION [None]
  - DIABETES MELLITUS [None]
  - EMOTIONAL DISORDER [None]
  - MENTAL DISORDER [None]
  - OEDEMA PERIPHERAL [None]
